FAERS Safety Report 19073645 (Version 3)
Quarter: 2021Q2

REPORT INFORMATION
  Report Type: Spontaneous
  Country: US (occurrence: US)
  Receive Date: 20210330
  Receipt Date: 20210518
  Transmission Date: 20210717
  Serious: No
  Sender: FDA-Public Use
  Company Number: US-BEH-2021129790

PATIENT
  Age: 71 Year
  Sex: Female

DRUGS (17)
  1. CLONAZEPAM. [Concomitant]
     Active Substance: CLONAZEPAM
     Dosage: 2 MILLIGRAM
  2. VITAMIN D3 [Concomitant]
     Active Substance: CHOLECALCIFEROL
  3. HIZENTRA [Suspect]
     Active Substance: HUMAN IMMUNOGLOBULIN G
     Dosage: 14 GRAMS, QOW
     Route: 058
  4. LAMOTRIGINE. [Concomitant]
     Active Substance: LAMOTRIGINE
     Dosage: TBD 50 MILLIGRAM
  5. OMEPRAZOLE. [Concomitant]
     Active Substance: OMEPRAZOLE
     Dosage: 20 MILLIGRAM
  6. ASPIR LOW [Concomitant]
     Active Substance: ASPIRIN
     Dosage: 81 MILLIGRAM
  7. HIZENTRA [Suspect]
     Active Substance: HUMAN IMMUNOGLOBULIN G
     Dosage: UNK
     Route: 058
     Dates: start: 20210318, end: 20210318
  8. METHENAMINE [Concomitant]
     Active Substance: METHENAMINE
     Dosage: 0.5 GRAM
  9. MULTIVITAMIN 6 [Concomitant]
     Active Substance: VITAMINS
  10. HIZENTRA [Suspect]
     Active Substance: HUMAN IMMUNOGLOBULIN G
     Indication: IMMUNODEFICIENCY COMMON VARIABLE
     Dosage: 14 GRAM, QOW
     Route: 058
     Dates: start: 202001
  11. CALCIUM [Concomitant]
     Active Substance: CALCIUM
     Dosage: 500 MILLIGRAM
  12. BIOTIN [Concomitant]
     Active Substance: BIOTIN
     Dosage: 10000 MICROGRAM
  13. CEPHALEXIN [CEFALEXIN] [Concomitant]
     Active Substance: CEPHALEXIN
     Dosage: 250 MILLIGRAM
  14. PREDNISONE. [Concomitant]
     Active Substance: PREDNISONE
     Dosage: 5 MILLIGRAM
  15. LAMOTRIGINE. [Concomitant]
     Active Substance: LAMOTRIGINE
     Dosage: 150 MILLIGRAM
  16. XANAX [Concomitant]
     Active Substance: ALPRAZOLAM
     Dosage: UNK MILLIGRAM
  17. HYDROCODONE/ACETAMINOPHEN [Concomitant]
     Active Substance: ACETAMINOPHEN\HYDROCODONE

REACTIONS (6)
  - Nausea [Not Recovered/Not Resolved]
  - No adverse event [Unknown]
  - Musculoskeletal stiffness [Not Recovered/Not Resolved]
  - Product dose omission issue [Unknown]
  - Fatigue [Not Recovered/Not Resolved]
  - Infusion related reaction [Recovered/Resolved]

NARRATIVE: CASE EVENT DATE: 202103
